FAERS Safety Report 15112101 (Version 2)
Quarter: 2018Q3

REPORT INFORMATION
  Report Type: Report from Study
  Country: US (occurrence: US)
  Receive Date: 20180705
  Receipt Date: 20180913
  Transmission Date: 20181010
  Serious: Yes (Death)
  Sender: FDA-Public Use
  Company Number: US-EMD SERONO-E2B_90049662

PATIENT
  Age: 63 Year
  Sex: Female

DRUGS (1)
  1. REBIF [Suspect]
     Active Substance: INTERFERON BETA-1A
     Indication: PRODUCT USED FOR UNKNOWN INDICATION
     Route: 058
     Dates: start: 20020819

REACTIONS (4)
  - Metastases to lung [Fatal]
  - Adenocarcinoma [Fatal]
  - Anal cancer recurrent [Fatal]
  - Rectal cancer recurrent [Fatal]

NARRATIVE: CASE EVENT DATE: 201212
